FAERS Safety Report 12346918 (Version 1)
Quarter: 2016Q2

REPORT INFORMATION
  Report Type: Spontaneous
  Country: US (occurrence: US)
  Receive Date: 20160509
  Receipt Date: 20160509
  Transmission Date: 20160815
  Serious: No
  Sender: FDA-Public Use
  Company Number: US-PFIZER INC-2016224539

PATIENT
  Age: 48 Year
  Sex: Male
  Weight: 90.72 kg

DRUGS (6)
  1. LISINOPRIL. [Concomitant]
     Active Substance: LISINOPRIL
     Indication: BLOOD PRESSURE ABNORMAL
  2. GABAPENTIN. [Concomitant]
     Active Substance: GABAPENTIN
     Indication: PAIN
  3. NAPROXEN. [Concomitant]
     Active Substance: NAPROXEN
     Indication: PAIN
  4. CLONIDINE. [Concomitant]
     Active Substance: CLONIDINE
     Indication: BACK PAIN
     Dosage: 24.86 UG,  IMPLANTED PUMP PUMPS MEDICATION OVER A 24 HOUR PERIOD
  5. DILAUDID [Concomitant]
     Active Substance: HYDROMORPHONE HYDROCHLORIDE
     Indication: BACK PAIN
     Dosage: UNK
  6. VIAGRA [Suspect]
     Active Substance: SILDENAFIL CITRATE
     Indication: ERECTILE DYSFUNCTION
     Dosage: 100 MG, AS NEEDED (100MG TABLETS ONE BY MOUTH DAILY AS NEEDED )
     Route: 048
     Dates: end: 20160417

REACTIONS (1)
  - Drug ineffective [Unknown]
